FAERS Safety Report 4299531-7 (Version None)
Quarter: 2004Q1

REPORT INFORMATION
  Report Type: 
  Country: None (occurrence: None)
  Receive Date: 20040219
  Receipt Date: 20040211
  Transmission Date: 20041129
  Serious: Yes (Life-Threatening)
  Sender: FDA-Public Use
  Company Number: FR-BRISTOL-MYERS SQUIBB COMPANY-12508834

PATIENT
  Age: 68 Year
  Sex: Male
  Weight: 78 kg

DRUGS (6)
  1. HOLOXAN [Suspect]
     Route: 042
     Dates: start: 20031229, end: 20031230
  2. DOXORUBICIN HCL [Suspect]
     Route: 042
     Dates: start: 20031229, end: 20031230
  3. PRIMPERAN INJ [Concomitant]
     Route: 042
  4. ZOPHREN [Concomitant]
     Route: 042
  5. TRANXENE [Concomitant]
     Route: 042
  6. SOLU-MEDROL [Concomitant]
     Route: 042

REACTIONS (1)
  - MYOCARDIAL INFARCTION [None]
